FAERS Safety Report 9360388 (Version 1)
Quarter: 2013Q2

REPORT INFORMATION
  Report Type: Spontaneous
  Country: NL (occurrence: NL)
  Receive Date: 20130621
  Receipt Date: 20130621
  Transmission Date: 20140414
  Serious: Yes (Other)
  Sender: FDA-Public Use
  Company Number: NL-ELI_LILLY_AND_COMPANY-NL201306004176

PATIENT
  Age: 46 Year
  Sex: Male
  Weight: 70 kg

DRUGS (9)
  1. ZYPADHERA [Suspect]
     Indication: PSYCHOTIC DISORDER
     Dosage: 405 MG, UNKNOWN
     Route: 030
     Dates: start: 20111210
  2. AKINETON                           /00079501/ [Concomitant]
     Dosage: 2 MG, UNKNOWN
     Dates: start: 20100908
  3. DIAZEPAM CF [Concomitant]
     Dosage: 10 MG, UNKNOWN
     Dates: start: 20130123
  4. TEMAZEPAM [Concomitant]
     Dosage: 10 MG, UNKNOWN
     Dates: start: 20110125
  5. AKINETON                           /00079501/ [Concomitant]
     Dosage: 1 ML, 3/W
     Dates: start: 20130109
  6. CISORDINOL ACUTARD [Concomitant]
     Dosage: 1 ML, UNKNOWN
     Dates: start: 20091214
  7. BETADINE SURGICAL SCRUB [Concomitant]
     Dosage: UNK
     Dates: start: 20130416
  8. MODAFINIL [Concomitant]
     Dosage: 50 MG, QD
     Dates: start: 20130426, end: 20130531
  9. SEROQUEL [Concomitant]
     Dosage: 25 MG, TID
     Dates: start: 20130104, end: 20130531

REACTIONS (5)
  - Compartment syndrome [Unknown]
  - Injection site abscess [Unknown]
  - Injection site extravasation [Unknown]
  - Dysuria [Unknown]
  - Off label use [Unknown]
